FAERS Safety Report 9725497 (Version 3)
Quarter: 2013Q4

REPORT INFORMATION
  Report Type: Spontaneous
  Country: DE (occurrence: DE)
  Receive Date: 20131203
  Receipt Date: 20131218
  Transmission Date: 20140711
  Serious: Yes (Other)
  Sender: FDA-Public Use
  Company Number: DE-EISAI INC-E2007-01389-SPO-DE

PATIENT
  Age: 20 Year
  Sex: Female
  Weight: 73 kg

DRUGS (4)
  1. FYCOMPA (PERAMPANEL) [Suspect]
     Indication: EPILEPSY
     Dosage: UNKNOWN
     Route: 048
     Dates: start: 201301, end: 201301
  2. FYCOMPA (PERAMPANEL) [Suspect]
     Dosage: 4 MG/DAY
     Route: 048
     Dates: start: 201301, end: 201306
  3. LACOSAMID [Concomitant]
     Indication: EPILEPSY
     Dosage: UNKNOWN
  4. LACOSAMID [Concomitant]
     Dosage: 75 MG IN AM / 100 MG IN EVENING

REACTIONS (6)
  - Electroencephalogram abnormal [Recovered/Resolved]
  - Off label use [Unknown]
  - Myoclonic epilepsy [Not Recovered/Not Resolved]
  - Convulsion [Recovered/Resolved]
  - Postictal state [Recovered/Resolved]
  - Urinary incontinence [Unknown]
